FAERS Safety Report 19709230 (Version 1)
Quarter: 2021Q3

REPORT INFORMATION
  Report Type: Spontaneous
  Country: DE (occurrence: DE)
  Receive Date: 20210817
  Receipt Date: 20210817
  Transmission Date: 20211014
  Serious: Yes (Congenital Anomaly)
  Sender: FDA-Public Use
  Company Number: DE-MYLANLABS-2021M1050796

PATIENT
  Sex: Female
  Weight: 3.72 kg

DRUGS (5)
  1. INFLUVAC TETRA [Concomitant]
     Active Substance: INFLUENZA VIRUS VACCINE QUADRIVALENT TYPE A+B
     Indication: IMMUNISATION
     Dosage: UNK
     Route: 064
     Dates: start: 20200911, end: 20200911
  2. LORATADINE. [Suspect]
     Active Substance: LORATADINE
     Indication: SEASONAL ALLERGY
     Dosage: UNK
     Route: 064
  3. RELVAR ELLIPTA                     /08236201/ [Suspect]
     Active Substance: FLUTICASONE FUROATE\VILANTEROL TRIFENATATE
     Indication: ASTHMA
     Dosage: 92 [?G/D (ALLE 1?2 TAGE) ] / 22 [?G/D (ALLE 1?2 TAGE) ]
     Route: 064
  4. SNUP [Concomitant]
     Indication: RHINITIS ALLERGIC
     Dosage: UNK
     Route: 064
     Dates: start: 20200118, end: 20201022
  5. MOMETASONE [Concomitant]
     Active Substance: MOMETASONE
     Indication: SEASONAL ALLERGY
     Dosage: UNK
     Route: 064

REACTIONS (3)
  - Foetal exposure during pregnancy [Unknown]
  - Atrial septal defect [Unknown]
  - Ventricular septal defect [Unknown]
